FAERS Safety Report 7998204-4 (Version None)
Quarter: 2011Q4

REPORT INFORMATION
  Report Type: 
  Country: None (occurrence: None)
  Receive Date: 20111221
  Receipt Date: 20110407
  Transmission Date: 20120403
  Serious: No
  Sender: FDA-Public Use
  Company Number: US-GLAXOSMITHKLINE-A0921843A

PATIENT
  Sex: Male

DRUGS (12)
  1. HYDROCODONE [Concomitant]
  2. JANUMET [Concomitant]
  3. LOVAZA [Suspect]
     Indication: BLOOD TRIGLYCERIDES INCREASED
     Dosage: 1CAP TWICE PER DAY
     Route: 048
  4. CADUET [Concomitant]
  5. FUROSEMIDE [Concomitant]
  6. TOPROL-XL [Concomitant]
  7. TRICOR [Concomitant]
  8. ASPIRIN [Concomitant]
  9. VIAGRA [Concomitant]
  10. HYZAAR [Concomitant]
  11. ZOLOFT [Concomitant]
  12. PLAVIX [Concomitant]

REACTIONS (1)
  - FLATULENCE [None]
